FAERS Safety Report 5021679-X (Version None)
Quarter: 2006Q2

REPORT INFORMATION
  Report Type: 
  Country: None (occurrence: None)
  Receive Date: 20060605
  Receipt Date: 20060519
  Transmission Date: 20061013
  Serious: No
  Sender: FDA-Public Use
  Company Number: US200605004457

PATIENT
  Sex: Female

DRUGS (1)
  1. CYMBALTA [Suspect]

REACTIONS (1)
  - GAMMA-GLUTAMYLTRANSFERASE INCREASED [None]
